FAERS Safety Report 9099953 (Version 2)
Quarter: 2013Q1

REPORT INFORMATION
  Report Type: Spontaneous
  Country: US (occurrence: US)
  Receive Date: 20130215
  Receipt Date: 20130305
  Transmission Date: 20140127
  Serious: Yes (Hospitalization)
  Sender: FDA-Public Use
  Company Number: US-PFIZER INC-2013058806

PATIENT
  Sex: Female

DRUGS (2)
  1. NEURONTIN [Suspect]
     Dosage: 800 MG, 3X/DAY
     Dates: start: 20121108
  2. ZOLOFT [Suspect]
     Dosage: UNK
     Dates: start: 20121108, end: 20130206

REACTIONS (3)
  - Suicidal ideation [Unknown]
  - Cardiac disorder [Unknown]
  - Tremor [Unknown]
